FAERS Safety Report 7157470-8 (Version None)
Quarter: 2010Q4

REPORT INFORMATION
  Report Type: 
  Country: None (occurrence: None)
  Receive Date: 20101214
  Receipt Date: 20101209
  Transmission Date: 20110411
  Serious: Yes (Other)
  Sender: FDA-Public Use
  Company Number: B0688330A

PATIENT
  Age: 55 Year
  Sex: Female

DRUGS (1)
  1. LAMICTAL [Suspect]
     Dates: start: 20100101

REACTIONS (2)
  - AGGRESSION [None]
  - IRRITABILITY [None]
